FAERS Safety Report 5563972-8 (Version None)
Quarter: 2007Q4

REPORT INFORMATION
  Report Type: 
  Country: None (occurrence: None)
  Receive Date: 20071217
  Receipt Date: 20071206
  Transmission Date: 20080405
  Serious: Yes (Other)
  Sender: FDA-Public Use
  Company Number: TR-ELI_LILLY_AND_COMPANY-TR200712001392

PATIENT
  Sex: Female
  Weight: 77 kg

DRUGS (6)
  1. HUMALOG MIX 75/25 [Suspect]
     Dosage: 36 IU, EACH MORNING
     Route: 065
     Dates: start: 20071001
  2. HUMALOG MIX 75/25 [Suspect]
     Dosage: 26 IU, EACH EVENING
     Route: 065
  3. HUMALOG MIX 75/25 [Suspect]
     Dosage: 26 IU, EACH MORNING
     Route: 065
     Dates: start: 20071001
  4. HUMALOG MIX 75/25 [Suspect]
     Dosage: 18 IU, EACH EVENING
     Route: 065
     Dates: start: 20071001
  5. KARVEA [Concomitant]
     Indication: HYPERTENSION
     Dosage: TWICE DAILY
     Route: 048
     Dates: start: 19880101
  6. DIGOXIN [Concomitant]
     Indication: CARDIAC FAILURE
     Dosage: ONCE DAILY
     Route: 048
     Dates: start: 19890101

REACTIONS (2)
  - BLOOD GLUCOSE INCREASED [None]
  - PALPITATIONS [None]
